FAERS Safety Report 9033614 (Version 1)
Quarter: 2013Q1

REPORT INFORMATION
  Report Type: Spontaneous
  Country: CA (occurrence: CA)
  Receive Date: 20130128
  Receipt Date: 20130128
  Transmission Date: 20140127
  Serious: Yes (Other)
  Sender: FDA-Public Use
  Company Number: CA-AMGEN-CANSP2012079762

PATIENT
  Age: 71 Year
  Sex: Male
  Weight: 63.64 kg

DRUGS (1)
  1. PROLIA [Suspect]
     Indication: OSTEOPOROSIS
     Dosage: UNK
     Dates: start: 20110530

REACTIONS (2)
  - Polyp [Not Recovered/Not Resolved]
  - Procedural pain [Not Recovered/Not Resolved]
